FAERS Safety Report 21359610 (Version 1)
Quarter: 2022Q3

REPORT INFORMATION
  Report Type: Spontaneous
  Country: HR (occurrence: HR)
  Receive Date: 20220921
  Receipt Date: 20220921
  Transmission Date: 20221027
  Serious: Yes (Other)
  Sender: FDA-Public Use
  Company Number: HR-PFIZER INC-PV202200062527

PATIENT
  Age: 48 Year
  Sex: Female

DRUGS (3)
  1. ENBREL [Suspect]
     Active Substance: ETANERCEPT
     Indication: Rheumatoid arthritis
     Dosage: 8 MG, 1X/DAY
     Dates: start: 200810, end: 201112
  2. ENBREL [Suspect]
     Active Substance: ETANERCEPT
     Dosage: 50 MG, WEEKLY
     Route: 058
     Dates: start: 201201
  3. MEDROL [Suspect]
     Active Substance: METHYLPREDNISOLONE
     Indication: Rheumatoid arthritis
     Dosage: 2 MG

REACTIONS (13)
  - Nephrolithiasis [Unknown]
  - Arthralgia [Unknown]
  - Pyrexia [Recovered/Resolved]
  - Rash [Unknown]
  - Mucosal dryness [Unknown]
  - Salivary gland disorder [Unknown]
  - Constipation [Unknown]
  - Arthralgia [Unknown]
  - Urinary tract infection [Unknown]
  - Urinary tract infection [Unknown]
  - Arthralgia [Unknown]
  - Blood thyroid stimulating hormone increased [Unknown]
  - Hyperlipidaemia [Unknown]

NARRATIVE: CASE EVENT DATE: 20111201
